FAERS Safety Report 8474533-5 (Version None)
Quarter: 2012Q2

REPORT INFORMATION
  Report Type: 
  Country: None (occurrence: None)
  Receive Date: 20120628
  Receipt Date: 20120625
  Transmission Date: 20120825
  Serious: Yes (Death)
  Sender: FDA-Public Use
  Company Number: AU-B.I. PHARMACEUTICALS,INC./RIDGEFIELD-2012-AU-01150AU

PATIENT
  Sex: Male

DRUGS (6)
  1. PERINDOPRIL ERBUMINE [Concomitant]
  2. PRADAXA [Suspect]
     Indication: CEREBROVASCULAR ACCIDENT PROPHYLAXIS
     Dates: start: 20110623, end: 20120501
  3. PRADAXA [Suspect]
     Indication: ATRIAL FIBRILLATION
  4. NEXIUM [Concomitant]
  5. ACETAMINOPHEN [Concomitant]
  6. LASIX [Concomitant]

REACTIONS (1)
  - DEATH [None]
